FAERS Safety Report 10392021 (Version 1)
Quarter: 2014Q3

REPORT INFORMATION
  Report Type: Spontaneous
  Country: JP (occurrence: JP)
  Receive Date: 20140819
  Receipt Date: 20140819
  Transmission Date: 20150326
  Serious: Yes (Other)
  Sender: FDA-Public Use
  Company Number: PHHY2009JP072369

PATIENT
  Age: 66 Year
  Sex: Male

DRUGS (1)
  1. GLIVEC [Suspect]
     Active Substance: IMATINIB MESYLATE
     Indication: GASTROINTESTINAL STROMAL TUMOUR
     Dosage: 400 MG, DAILY
     Dates: start: 200711

REACTIONS (5)
  - Abdominal pain [Unknown]
  - Ileus [Unknown]
  - Inflammation [Unknown]
  - C-reactive protein increased [Unknown]
  - Desmoid tumour [Unknown]

NARRATIVE: CASE EVENT DATE: 200905
